FAERS Safety Report 5897555-7 (Version None)
Quarter: 2008Q3

REPORT INFORMATION
  Report Type: 
  Country: None (occurrence: None)
  Receive Date: 20080925
  Receipt Date: 20080916
  Transmission Date: 20090109
  Serious: Yes (Hospitalization, Other)
  Sender: FDA-Public Use
  Company Number: US-BAYER-200833870NA

PATIENT
  Age: 16 Year
  Sex: Male
  Weight: 53 kg

DRUGS (5)
  1. CAMPATH [Suspect]
     Indication: RENAL TRANSPLANT
     Dosage: UNIT DOSE: 0.3 MG/KG
     Route: 042
     Dates: start: 20060215, end: 20060215
  2. CAMPATH [Suspect]
     Dosage: UNIT DOSE: 0.3 MG/KG
     Route: 042
     Dates: start: 20060217, end: 20060217
  3. PROGRAF [Concomitant]
     Dates: start: 20060217
  4. LANSOPRAZOLE [Concomitant]
     Dates: start: 20060226
  5. FERROUS SULFATE TAB [Concomitant]
     Dates: start: 20060316

REACTIONS (1)
  - TRANSPLANT REJECTION [None]
